FAERS Safety Report 5283896-3 (Version None)
Quarter: 2007Q2

REPORT INFORMATION
  Report Type: 
  Country: None (occurrence: None)
  Receive Date: 20070402
  Receipt Date: 20070329
  Transmission Date: 20071010
  Serious: Yes (Other)
  Sender: FDA-Public Use
  Company Number: CA-MERCK-0703CAN00029

PATIENT
  Age: 44 Year
  Sex: Male

DRUGS (6)
  1. COZAAR [Concomitant]
     Indication: HYPERTENSION
     Route: 048
     Dates: start: 20060203, end: 20060302
  2. COZAAR [Concomitant]
     Route: 048
     Dates: start: 20060303, end: 20060330
  3. COZAAR [Concomitant]
     Route: 048
     Dates: start: 20060331, end: 20060427
  4. HYZAAR [Suspect]
     Indication: HYPERTENSION
     Route: 048
     Dates: start: 20060331, end: 20060427
  5. HYZAAR [Suspect]
     Route: 048
     Dates: start: 20060428
  6. [THERAPY UNSPECIFIED] [Concomitant]
     Indication: HYPERTENSION
     Route: 048
     Dates: start: 20060925

REACTIONS (1)
  - FEMORAL ARTERY OCCLUSION [None]
